FAERS Safety Report 17486436 (Version 2)
Quarter: 2020Q2

REPORT INFORMATION
  Report Type: Spontaneous
  Country: JP (occurrence: JP)
  Receive Date: 20200303
  Receipt Date: 20200401
  Transmission Date: 20200713
  Serious: Yes (Life-Threatening, Hospitalization)
  Sender: FDA-Public Use
  Company Number: JP-TEVA-2020-JP-1193221

PATIENT
  Age: 7 Decade
  Sex: Male

DRUGS (6)
  1. EPINEPHRINE. [Suspect]
     Active Substance: EPINEPHRINE
     Indication: ANAPHYLACTIC SHOCK
     Route: 065
  2. INTERFERON [Suspect]
     Active Substance: INTERFERON
     Indication: CHRONIC HEPATITIS B
     Route: 065
  3. GLUCAGON. [Concomitant]
     Active Substance: GLUCAGON
     Dosage: 2 UNITS
     Route: 042
  4. WARFARIN [Suspect]
     Active Substance: WARFARIN
     Route: 048
  5. SODIUM HYDROCORTISONE SUCCINATE [Suspect]
     Active Substance: HYDROCORTISONE SODIUM SUCCINATE
     Indication: ANAPHYLACTIC SHOCK
     Dosage: SODIUM HYDROCORTISONE SUCCINATE
     Route: 065
  6. ATROPINE SULFATE. [Suspect]
     Active Substance: ATROPINE SULFATE
     Indication: ANAPHYLACTIC SHOCK
     Route: 065

REACTIONS (3)
  - Oesophageal intramural haematoma [Recovered/Resolved]
  - Pyrexia [Unknown]
  - Drug ineffective [Unknown]
